FAERS Safety Report 5132648-3 (Version None)
Quarter: 2006Q4

REPORT INFORMATION
  Report Type: 
  Country: None (occurrence: None)
  Receive Date: 20061023
  Receipt Date: 20060927
  Transmission Date: 20070319
  Serious: Yes (Death, Hospitalization)
  Sender: FDA-Public Use
  Company Number: PHBS2006JP15023

PATIENT
  Age: 41 Year
  Sex: Female

DRUGS (8)
  1. SANDIMMUNE [Suspect]
     Indication: ALLOGENIC BONE MARROW TRANSPLANTATION THERAPY
     Dosage: 150 MG/D
     Route: 042
     Dates: start: 20040713, end: 20041001
  2. SANDIMMUNE [Suspect]
     Dosage: 120 MG/D
     Route: 042
     Dates: start: 20041002, end: 20041004
  3. SANDIMMUNE [Suspect]
     Dosage: 100 MG/D
     Route: 042
     Dates: start: 20041005, end: 20041008
  4. SANDIMMUNE [Suspect]
     Dosage: 60 MG/D
     Route: 042
     Dates: start: 20041009, end: 20041012
  5. SANDIMMUNE [Suspect]
     Dosage: 40 MG/D
     Route: 042
     Dates: start: 20041013, end: 20041025
  6. PROGRAF [Suspect]
     Indication: ALLOGENIC BONE MARROW TRANSPLANTATION THERAPY
     Route: 065
     Dates: start: 20041215
  7. METHYLPREDNISOLONE 4MG TAB [Concomitant]
     Indication: ALLOGENIC BONE MARROW TRANSPLANTATION THERAPY
     Dates: start: 20041107
  8. METHOTREXATE [Concomitant]

REACTIONS (7)
  - ABDOMINAL PAIN UPPER [None]
  - ASPERGILLOSIS [None]
  - ENTEROCOLITIS FUNGAL [None]
  - GRAFT VERSUS HOST DISEASE [None]
  - MELAENA [None]
  - PSEUDOMEMBRANOUS COLITIS [None]
  - SEPSIS [None]
